FAERS Safety Report 13776225 (Version 2)
Quarter: 2017Q3

REPORT INFORMATION
  Report Type: Spontaneous
  Country: JP (occurrence: JP)
  Receive Date: 20170721
  Receipt Date: 20170920
  Transmission Date: 20171127
  Serious: Yes (Hospitalization, Other)
  Sender: FDA-Public Use
  Company Number: JP-BAYER-2017-134786

PATIENT
  Age: 11 Month
  Sex: Male
  Weight: 8.75 kg

DRUGS (9)
  1. TARGOCID [Suspect]
     Active Substance: TEICOPLANIN
     Indication: ARTHRITIS
     Dosage: UNK
     Route: 041
     Dates: start: 20170629, end: 20170706
  2. PLAVIX [Concomitant]
     Active Substance: CLOPIDOGREL BISULFATE
     Dosage: UNK
     Dates: start: 20170719
  3. VANCOMYCIN [Suspect]
     Active Substance: VANCOMYCIN
     Indication: ARTHRITIS
     Dosage: UNK
     Route: 041
     Dates: start: 20170619, end: 20170629
  4. ASPIRIN 100 % [Suspect]
     Active Substance: ASPIRIN
     Indication: KAWASAKI^S DISEASE
     Dosage: DAILY DOSE 40 MG
     Route: 048
     Dates: start: 20170620, end: 20170710
  5. POLYGLOBIN [Concomitant]
     Active Substance: HUMAN IMMUNOGLOBULIN G
     Dosage: UNK UNK, ONCE
     Route: 041
     Dates: start: 20170711
  6. ALDACTONE A [Concomitant]
     Active Substance: SPIRONOLACTONE
     Dosage: UNK
     Dates: start: 20170712, end: 20170716
  7. FUROSEMIDE. [Concomitant]
     Active Substance: FUROSEMIDE
     Dosage: UNK
     Dates: start: 20170712, end: 20170730
  8. GASTER [Concomitant]
     Active Substance: FAMOTIDINE
     Dosage: UNK
     Dates: start: 20170716
  9. BACTRAMIN [Concomitant]
     Active Substance: SULFAMETHOXAZOLE\TRIMETHOPRIM
     Dosage: UNK
     Dates: start: 20170712, end: 20170721

REACTIONS (7)
  - Platelet count decreased [None]
  - Pericarditis [Recovered/Resolved]
  - Hepatic function abnormal [Recovered/Resolved]
  - Histiocytosis haematophagic [None]
  - Pancytopenia [Recovered/Resolved]
  - Neutrophil count decreased [None]
  - Rash [Recovered/Resolved]

NARRATIVE: CASE EVENT DATE: 20170702
